FAERS Safety Report 18677202 (Version 2)
Quarter: 2021Q1

REPORT INFORMATION
  Report Type: Spontaneous
  Country: JP (occurrence: JP)
  Receive Date: 20201229
  Receipt Date: 20210111
  Transmission Date: 20210419
  Serious: Yes (Death, Other)
  Sender: FDA-Public Use
  Company Number: JP-TEVA-2020-JP-1863033

PATIENT
  Sex: Male

DRUGS (10)
  1. LUNESTA [Interacting]
     Active Substance: ESZOPICLONE
     Indication: SCHIZOPHRENIA
     Route: 065
  2. OLANZAPINE. [Suspect]
     Active Substance: OLANZAPINE
     Indication: SCHIZOPHRENIA
     Route: 065
  3. ABILIFY [Interacting]
     Active Substance: ARIPIPRAZOLE
     Indication: SCHIZOPHRENIA
     Route: 065
  4. FLUNITRAZEPAM [Interacting]
     Active Substance: FLUNITRAZEPAM
     Indication: SCHIZOPHRENIA
     Route: 065
  5. CERCINE [Interacting]
     Active Substance: DIAZEPAM
     Indication: SCHIZOPHRENIA
     Route: 065
  6. LEXAPRO [Interacting]
     Active Substance: ESCITALOPRAM OXALATE
     Indication: SCHIZOPHRENIA
     Route: 065
  7. RISPERIDONE. [Interacting]
     Active Substance: RISPERIDONE
     Indication: SCHIZOPHRENIA
     Route: 065
  8. ADRENALINE [Suspect]
     Active Substance: EPINEPHRINE
     Indication: CARDIAC ARREST
     Route: 042
  9. AKINETON [Interacting]
     Active Substance: BIPERIDEN HYDROCHLORIDE
     Indication: SCHIZOPHRENIA
     Route: 065
  10. CAFFEINE. [Interacting]
     Active Substance: CAFFEINE
     Indication: INTENTIONAL OVERDOSE
     Route: 048

REACTIONS (15)
  - Toxicity to various agents [Fatal]
  - Drug interaction [Fatal]
  - Apnoea [Unknown]
  - Pulse absent [Unknown]
  - Cardiac arrest [Unknown]
  - Completed suicide [Fatal]
  - Intentional overdose [Fatal]
  - Gait disturbance [Unknown]
  - Loss of consciousness [Unknown]
  - Vomiting [Unknown]
  - Drug ineffective [Unknown]
  - Ventricular fibrillation [Unknown]
  - Circulatory collapse [Unknown]
  - Malaise [Unknown]
  - Pain [Unknown]
